FAERS Safety Report 18283579 (Version 1)
Quarter: 2020Q3

REPORT INFORMATION
  Report Type: Spontaneous
  Country: IT (occurrence: IT)
  Receive Date: 20200918
  Receipt Date: 20200918
  Transmission Date: 20201103
  Serious: Yes (Hospitalization)
  Sender: FDA-Public Use
  Company Number: IT-BAUSCH-BL-2020-026554

PATIENT
  Age: 74 Year
  Sex: Female

DRUGS (2)
  1. XENAZINA [Suspect]
     Active Substance: TETRABENAZINE
     Indication: INTENTIONAL OVERDOSE
     Dosage: TOTAL
     Route: 048
     Dates: start: 20200904, end: 20200904
  2. RIVOTRIL [Concomitant]
     Active Substance: CLONAZEPAM
     Indication: INTENTIONAL OVERDOSE
     Dosage: TOTAL
     Route: 048
     Dates: start: 20200904, end: 20200904

REACTIONS (3)
  - Suicide attempt [Recovering/Resolving]
  - Bradycardia [Recovering/Resolving]
  - Hypotension [Recovering/Resolving]

NARRATIVE: CASE EVENT DATE: 20200904
